FAERS Safety Report 4554624-1 (Version None)
Quarter: 2005Q1

REPORT INFORMATION
  Report Type: 
  Country: None (occurrence: None)
  Receive Date: 20041228
  Receipt Date: 20041028
  Transmission Date: 20050727
  Serious: Yes (Other)
  Sender: FDA-Public Use
  Company Number: PHEH2004US11665

PATIENT
  Age: 8 Year
  Sex: Female

DRUGS (1)
  1. RITALIN LA [Suspect]

REACTIONS (1)
  - PSYCHOTIC DISORDER [None]
